FAERS Safety Report 9688957 (Version 1)
Quarter: 2013Q4

REPORT INFORMATION
  Report Type: Spontaneous
  Country: US (occurrence: US)
  Receive Date: 20131114
  Receipt Date: 20131114
  Transmission Date: 20140711
  Serious: Yes (Hospitalization)
  Sender: FDA-Public Use
  Company Number: US-GLAXOSMITHKLINE-A1049207A

PATIENT
  Age: 51 Year
  Sex: Female

DRUGS (14)
  1. LOVAZA [Suspect]
     Indication: BLOOD TRIGLYCERIDES INCREASED
     Dosage: 4CAP PER DAY
     Route: 048
     Dates: start: 2008
  2. CINNAMON [Concomitant]
  3. MUCINEX [Concomitant]
  4. METHYLDOPA [Concomitant]
  5. ALLEGRA [Concomitant]
  6. SUDAFED 12 HOUR [Concomitant]
  7. ZANAFLEX [Concomitant]
  8. PARAFON FORTE [Concomitant]
  9. CLONAZEPAM [Concomitant]
  10. SINGULAIR [Concomitant]
  11. QVAR [Concomitant]
  12. MAXAIR [Concomitant]
  13. OMNARIS [Concomitant]
  14. ARMOUR THYROID [Concomitant]

REACTIONS (3)
  - Irritable bowel syndrome [Unknown]
  - Colonoscopy [Unknown]
  - Large intestine polyp [Unknown]
